FAERS Safety Report 12045959 (Version 7)
Quarter: 2016Q3

REPORT INFORMATION
  Report Type: Report from Study
  Country: CN (occurrence: CN)
  Receive Date: 20160208
  Receipt Date: 20160802
  Transmission Date: 20161109
  Serious: Yes (Hospitalization, Other)
  Sender: FDA-Public Use
  Company Number: PHHY2016CN000610

PATIENT
  Age: 51 Year
  Sex: Male
  Weight: 70 kg

DRUGS (88)
  1. TACROLIMUS. [Suspect]
     Active Substance: TACROLIMUS
     Indication: IMMUNOSUPPRESSANT DRUG THERAPY
     Dosage: 2 MG, QD
     Route: 065
     Dates: start: 20151203, end: 20151206
  2. ISOSORBIDE MONONITRATE SUSTAINED RELEASE TABLETS [Concomitant]
     Indication: HYPERTENSION
     Dosage: 60 MG, QN
     Route: 048
     Dates: start: 20151203
  3. AZITHROMYCIN ANHYDROUS. [Concomitant]
     Active Substance: AZITHROMYCIN ANHYDROUS
     Indication: PROPHYLAXIS
     Dosage: 500 MG, QD
     Route: 048
     Dates: start: 20151216, end: 20151218
  4. BUDESONIDE. [Concomitant]
     Active Substance: BUDESONIDE
     Indication: PROPHYLAXIS
     Dosage: 1 MG, BID
     Route: 055
     Dates: start: 20151219, end: 20151225
  5. DOPAMINE [Concomitant]
     Active Substance: DOPAMINE\DOPAMINE HYDROCHLORIDE
     Indication: HYPERTENSION
     Dosage: 200 MG, TID
     Route: 042
     Dates: start: 20151203, end: 20151203
  6. LANSOPRAZOLE. [Concomitant]
     Active Substance: LANSOPRAZOLE
     Indication: ANTACID THERAPY
     Dosage: 30 MG, BID
     Route: 042
     Dates: start: 20151203, end: 20151208
  7. POTASSIUM CHLORIDE. [Concomitant]
     Active Substance: POTASSIUM CHLORIDE
     Indication: FLUID REPLACEMENT
     Dosage: 4 G, QD
     Route: 042
     Dates: start: 20151203, end: 20151203
  8. LACTULOSE. [Concomitant]
     Active Substance: LACTULOSE
     Indication: FLUID REPLACEMENT
     Dosage: 10 ML, TID
     Route: 048
     Dates: start: 20151203
  9. AMBROXOL HYDROCHLORIDE [Concomitant]
     Active Substance: AMBROXOL HYDROCHLORIDE
     Indication: INFLAMMATION
  10. INSULIN [Concomitant]
     Active Substance: INSULIN NOS
     Indication: FLUID REPLACEMENT
     Dosage: 8 IU, QD
     Route: 042
     Dates: start: 20151203, end: 20151203
  11. FUROSEMIDE. [Concomitant]
     Active Substance: FUROSEMIDE
     Indication: DIURETIC THERAPY
     Dosage: 40 MG, QD
     Route: 042
     Dates: start: 20151203, end: 20151203
  12. CALCII CHLORIDUM//CALCIUM CHLORIDE [Concomitant]
     Indication: FLUID REPLACEMENT
     Dosage: 1 G, QD
     Route: 042
     Dates: start: 20151203, end: 20151203
  13. ALBUMIN HUMAN [Concomitant]
     Active Substance: ALBUMIN HUMAN
     Dosage: 20 G, BID
     Route: 042
     Dates: start: 20151204, end: 20151205
  14. SORA THIOSOL [Concomitant]
     Dosage: 30 MG, QD
     Route: 041
     Dates: start: 20160623, end: 20160625
  15. HAEMOCOAGULASE ATROX [Concomitant]
     Dosage: 2 IU, BID
     Route: 042
     Dates: start: 20160621, end: 20160625
  16. MYFORTIC [Suspect]
     Active Substance: MYCOPHENOLATE SODIUM
     Indication: RENAL TRANSPLANT
     Dosage: 1440 MG, QD
     Route: 065
     Dates: start: 20151203, end: 20151204
  17. MYFORTIC [Suspect]
     Active Substance: MYCOPHENOLATE SODIUM
     Dosage: 540 MG, QD
     Route: 048
     Dates: start: 20160609
  18. BASILIXIMAB [Suspect]
     Active Substance: BASILIXIMAB
     Dosage: 20 MG, QD
     Route: 065
     Dates: start: 20151206, end: 20151206
  19. ISOSORBIDE MONONITRATE SUSTAINED RELEASE TABLETS [Concomitant]
     Dosage: 60 MG, QD
     Route: 048
     Dates: start: 20160114
  20. MONTELUKAST SODIUM. [Concomitant]
     Active Substance: MONTELUKAST SODIUM
     Indication: PROPHYLAXIS
     Dosage: 10 MG, QN
     Route: 048
     Dates: start: 20151219
  21. ALOSTIN//ALPROSTADIL [Concomitant]
     Indication: ANTICOAGULANT THERAPY
     Dosage: 10 UG, QD
     Route: 042
     Dates: start: 20151204, end: 20151205
  22. SODIUM BICARBONATE. [Concomitant]
     Active Substance: SODIUM BICARBONATE
     Indication: THERAPEUTIC GARGLE
     Dosage: 50 ML, BID
     Route: 050
     Dates: start: 20151219, end: 20151227
  23. INSULIN [Concomitant]
     Active Substance: INSULIN NOS
     Dosage: 8 IU, QD
     Route: 042
     Dates: start: 20151230, end: 20151230
  24. PANTOPRAZOLE [Concomitant]
     Active Substance: PANTOPRAZOLE SODIUM
     Indication: GASTRITIS PROPHYLAXIS
     Dosage: 40 MG, BID
     Route: 042
     Dates: start: 20151203, end: 20151203
  25. AMBROXOL HYDROCHLORIDE [Concomitant]
     Active Substance: AMBROXOL HYDROCHLORIDE
     Indication: PROPHYLAXIS
     Dosage: 15 MG, BID
     Route: 055
     Dates: start: 20151219, end: 20151225
  26. ERTAPENEM [Concomitant]
     Active Substance: ERTAPENEM
     Indication: PRODUCT USED FOR UNKNOWN INDICATION
     Dosage: 1 G, QD
     Route: 041
     Dates: start: 20160621, end: 20160629
  27. HAEMOCOAGULASE ATROX [Concomitant]
     Indication: PRODUCT USED FOR UNKNOWN INDICATION
     Dosage: 2 IU, QD
     Route: 042
     Dates: start: 20160620, end: 20160620
  28. MYFORTIC [Suspect]
     Active Substance: MYCOPHENOLATE SODIUM
     Dosage: 900 MG, QD
     Route: 048
     Dates: start: 20160514, end: 20160608
  29. METHYLPREDNISOLONE. [Suspect]
     Active Substance: METHYLPREDNISOLONE
     Indication: IMMUNOSUPPRESSANT DRUG THERAPY
     Dosage: 1000 MG, QD
     Route: 065
     Dates: start: 20151202, end: 20151202
  30. TACROLIMUS. [Suspect]
     Active Substance: TACROLIMUS
     Dosage: 5 MG, QD
     Route: 065
     Dates: start: 20160505, end: 20160513
  31. TACROLIMUS. [Suspect]
     Active Substance: TACROLIMUS
     Dosage: 3.5 MG, QD
     Route: 065
     Dates: start: 20160514, end: 20160515
  32. ASPIRIN ENTERIC COATED TABLETS [Concomitant]
     Indication: HYPERTENSION
     Dosage: 100 MG, QD
     Route: 048
     Dates: start: 20151213
  33. HEPARIN SODIUM. [Concomitant]
     Active Substance: HEPARIN SODIUM
     Dosage: 0.625 IU, QD
     Route: 042
     Dates: start: 20151203, end: 20151203
  34. PHOSPHOCREATINE SODIUM [Concomitant]
     Indication: FLUID REPLACEMENT
     Dosage: 2 G, BID
     Route: 042
     Dates: start: 20151203, end: 20151203
  35. POTASSIUM CHLORIDE. [Concomitant]
     Active Substance: POTASSIUM CHLORIDE
     Dosage: 2 G, TID
     Route: 042
     Dates: start: 20151204, end: 20151204
  36. DICLOFENAC SODIUM. [Concomitant]
     Active Substance: DICLOFENAC SODIUM
     Indication: ANTIINFLAMMATORY THERAPY
     Dosage: 37.5 MG, QD
     Route: 048
     Dates: start: 20151230, end: 20151230
  37. CEFUROXIME AXETIL. [Concomitant]
     Active Substance: CEFUROXIME AXETIL
     Indication: ANTIINFLAMMATORY THERAPY
     Dosage: 250 MG, BID
     Route: 048
     Dates: start: 20151218, end: 20151219
  38. AMBROXOL HYDROCHLORIDE [Concomitant]
     Active Substance: AMBROXOL HYDROCHLORIDE
     Indication: PROPHYLAXIS
     Dosage: 30 MG, BID
     Route: 042
     Dates: start: 20151203, end: 20151203
  39. XYLOMETAZOLINE HYDROCHLORIDE [Concomitant]
     Active Substance: XYLOMETAZOLINE HYDROCHLORIDE
     Indication: ANTIINFLAMMATORY THERAPY
     Dosage: 10 ML, QD
     Route: 045
     Dates: start: 20151229, end: 20151229
  40. INSULIN [Concomitant]
     Active Substance: INSULIN NOS
     Dosage: 6 IU, QD
     Route: 042
     Dates: start: 20160606, end: 20160607
  41. PARACETAMOL [Concomitant]
     Active Substance: ACETAMINOPHEN
     Indication: INFLAMMATION
     Dosage: 1 DF, QD
     Route: 048
     Dates: start: 20151230, end: 20151230
  42. AMBROXOL HYDROCHLORIDE [Concomitant]
     Active Substance: AMBROXOL HYDROCHLORIDE
     Indication: COUGH
     Dosage: 15 MG, QID
     Route: 055
     Dates: start: 20151203, end: 20151203
  43. MYFORTIC [Suspect]
     Active Substance: MYCOPHENOLATE SODIUM
     Indication: IMMUNOSUPPRESSANT DRUG THERAPY
     Dosage: 1080 MG, QD
     Route: 065
     Dates: start: 20151205, end: 20160513
  44. TACROLIMUS. [Suspect]
     Active Substance: TACROLIMUS
     Indication: RENAL TRANSPLANT
     Dosage: 3 MG, QD
     Route: 065
     Dates: start: 20151207, end: 20160103
  45. ISOSORBIDE MONONITRATE SUSTAINED RELEASE TABLETS [Concomitant]
     Dosage: 60 MG, QD
     Route: 048
     Dates: start: 20160104
  46. DOPAMINE [Concomitant]
     Active Substance: DOPAMINE\DOPAMINE HYDROCHLORIDE
     Dosage: 200 MG, QD
     Route: 042
     Dates: start: 20151204, end: 20151204
  47. GLUTATHIONE [Concomitant]
     Active Substance: GLUTATHIONE
     Indication: PROPHYLAXIS
     Dosage: 2400 MG, BID
     Route: 042
     Dates: start: 20151203, end: 20151203
  48. CALCIUM + D3                       /00944201/ [Concomitant]
     Active Substance: CALCIUM CARBONATE\CHOLECALCIFEROL
     Indication: MINERAL SUPPLEMENTATION
     Dosage: 600 MG, QD
     Route: 048
     Dates: start: 20151208
  49. TERBUTALINE SULFATE. [Concomitant]
     Active Substance: TERBUTALINE SULFATE
     Indication: ANTIINFLAMMATORY THERAPY
     Dosage: 0.25 MG, BID
     Route: 055
     Dates: start: 20151219, end: 20151225
  50. CEFMINOX//CEFMINOX SODIUM [Concomitant]
     Indication: URINARY TRACT INFECTION
     Dosage: 2 G, BID
     Route: 042
     Dates: start: 20151203, end: 20151208
  51. CEFUROXIME AXETIL. [Concomitant]
     Active Substance: CEFUROXIME AXETIL
     Dosage: 250 MG, BID
     Route: 048
     Dates: start: 20151213, end: 20151216
  52. TORASEMIDE [Concomitant]
     Active Substance: TORSEMIDE
     Dosage: 20 MG, TID
     Route: 042
     Dates: start: 20151203, end: 20151204
  53. AMBROXOL HYDROCHLORIDE [Concomitant]
     Active Substance: AMBROXOL HYDROCHLORIDE
     Indication: COUGH
     Dosage: 30 MG, TID
     Route: 048
     Dates: start: 20151213, end: 20151215
  54. AMBROXOL HYDROCHLORIDE [Concomitant]
     Active Substance: AMBROXOL HYDROCHLORIDE
     Indication: DYSPNOEA
  55. AMBROXOL HYDROCHLORIDE [Concomitant]
     Active Substance: AMBROXOL HYDROCHLORIDE
     Indication: DYSPNOEA
     Dosage: 30 MG, QD
     Route: 055
     Dates: start: 20151213, end: 20151219
  56. TACROLIMUS. [Suspect]
     Active Substance: TACROLIMUS
     Dosage: 4 MG, QD
     Route: 065
     Dates: start: 20160303, end: 20160504
  57. ASPIRIN ENTERIC COATED TABLETS [Concomitant]
     Dosage: 100 MG, QD
     Route: 048
     Dates: start: 20160114, end: 20160608
  58. HEPARIN SODIUM. [Concomitant]
     Active Substance: HEPARIN SODIUM
     Indication: PRODUCT USED FOR UNKNOWN INDICATION
     Dosage: 0.025 IU, QD
     Route: 042
     Dates: start: 20151203, end: 20151203
  59. RABEPRAZOLE [Concomitant]
     Active Substance: RABEPRAZOLE
     Indication: ANTACID THERAPY
     Dosage: 20 MG, QD
     Route: 048
     Dates: start: 20160104
  60. CALCIUM + D3                       /00944201/ [Concomitant]
     Active Substance: CALCIUM CARBONATE\CHOLECALCIFEROL
     Dosage: 600 MG, QD
     Route: 048
     Dates: start: 20160104
  61. CEFMINOX//CEFMINOX SODIUM [Concomitant]
     Indication: INFECTION PROPHYLAXIS
     Dosage: 2 G, BID
     Route: 042
     Dates: start: 20160114, end: 20160116
  62. CILASTATIN SODIUM W/IMIPENEM [Concomitant]
     Active Substance: CILASTATIN SODIUM\IMIPENEM
     Indication: PRODUCT USED FOR UNKNOWN INDICATION
     Dosage: 1 G, QD
     Route: 041
     Dates: start: 20160620, end: 20160620
  63. TACROLIMUS. [Suspect]
     Active Substance: TACROLIMUS
     Dosage: 5 MG, QD
     Route: 065
     Dates: start: 20160104, end: 20160302
  64. PREDNISONE. [Suspect]
     Active Substance: PREDNISONE
     Indication: IMMUNOSUPPRESSANT DRUG THERAPY
     Dosage: 20 MG, QD
     Route: 065
     Dates: start: 20151206, end: 20160309
  65. ASPIRIN ENTERIC COATED TABLETS [Concomitant]
     Dosage: 100 MG, QD
     Route: 048
     Dates: start: 20160104
  66. LANSOPRAZOLE. [Concomitant]
     Active Substance: LANSOPRAZOLE
     Indication: ANTACID THERAPY
  67. RABEPRAZOLE [Concomitant]
     Active Substance: RABEPRAZOLE
     Indication: GASTRITIS PROPHYLAXIS
     Dosage: 10 MG, QN
     Route: 048
     Dates: start: 20151208
  68. METHOXYPHENAMINE [Concomitant]
     Active Substance: METHOXYPHENAMINE
     Indication: PROPHYLAXIS
     Dosage: 46.5 MG, TID
     Route: 048
     Dates: start: 20151215, end: 20151225
  69. AMBROXOL HYDROCHLORIDE [Concomitant]
     Active Substance: AMBROXOL HYDROCHLORIDE
     Indication: PRODUCTIVE COUGH
     Dosage: 30 MG, QD
     Route: 055
     Dates: start: 20151203, end: 20151208
  70. SORA THIOSOL [Concomitant]
     Indication: PRODUCT USED FOR UNKNOWN INDICATION
     Dosage: 30 MG, QD
     Route: 041
     Dates: start: 20160620, end: 20160621
  71. COMPOND AMINO ACID [Concomitant]
     Indication: PRODUCT USED FOR UNKNOWN INDICATION
     Dosage: 400 ML, QD
     Route: 041
     Dates: start: 20160620, end: 20160621
  72. ALANYL GLUTAMINE [Concomitant]
     Active Substance: ALANYL GLUTAMINE
     Indication: PRODUCT USED FOR UNKNOWN INDICATION
     Dosage: 16 G, UNK
     Route: 041
     Dates: start: 20160620, end: 20160621
  73. METHYLPREDNISOLONE. [Suspect]
     Active Substance: METHYLPREDNISOLONE
     Dosage: 500 MG, QD
     Route: 065
     Dates: start: 20151203, end: 20151206
  74. PREDNISONE. [Suspect]
     Active Substance: PREDNISONE
     Dosage: 10 MG, QD
     Route: 065
     Dates: start: 20160310
  75. GLYCERIN. [Concomitant]
     Active Substance: GLYCERIN
     Indication: CONSTIPATION
     Dosage: 110 ML, QD
     Route: 050
     Dates: start: 20151203, end: 20151203
  76. POTASSIUM CHLORIDE. [Concomitant]
     Active Substance: POTASSIUM CHLORIDE
     Dosage: 1 G, TID
     Route: 041
     Dates: start: 20160606, end: 20160607
  77. MICAFUNGIN SODIUM [Concomitant]
     Active Substance: MICAFUNGIN SODIUM
     Indication: INFECTION PROPHYLAXIS
     Dosage: 100 MG, QD
     Route: 042
     Dates: start: 20151203, end: 20151215
  78. MYRTOL [Concomitant]
     Active Substance: HERBALS
     Indication: ANTIINFLAMMATORY THERAPY
     Dosage: 300 MG, BID
     Route: 048
     Dates: start: 20151219, end: 20160104
  79. LIQUORICE [Concomitant]
     Active Substance: LICORICE
     Indication: INFLAMMATION
     Dosage: 4 DF, TID
     Route: 048
     Dates: start: 20151222, end: 20151226
  80. SODIUM CHLORIDE + DEXTROS [Concomitant]
     Indication: PRODUCT USED FOR UNKNOWN INDICATION
     Dosage: 500 ML, QD
     Route: 041
     Dates: start: 20160606, end: 20160607
  81. BASILIXIMAB [Suspect]
     Active Substance: BASILIXIMAB
     Indication: IMMUNOSUPPRESSANT DRUG THERAPY
     Dosage: 20 MG, QD
     Route: 065
     Dates: start: 20151202, end: 20151202
  82. ALCOHOL. [Concomitant]
     Active Substance: ALCOHOL
     Indication: PRODUCT USED FOR UNKNOWN INDICATION
     Dosage: 250 ML, QD
     Route: 065
     Dates: start: 20151203, end: 20151203
  83. TORASEMIDE [Concomitant]
     Active Substance: TORSEMIDE
     Indication: DIURETIC THERAPY
     Dosage: 20 MG, BID
     Route: 042
     Dates: start: 20151203, end: 20151203
  84. TORASEMIDE [Concomitant]
     Active Substance: TORSEMIDE
     Dosage: 20 MG, QD
     Route: 042
     Dates: start: 20151205, end: 20151206
  85. NITROGLYCERIN. [Concomitant]
     Active Substance: NITROGLYCERIN
     Indication: HYPERTENSION
     Dosage: 0.5 MG, QD
     Route: 060
     Dates: start: 20151203, end: 20151203
  86. ACETYL CYSTEINE [Concomitant]
     Indication: ANTIINFLAMMATORY THERAPY
     Dosage: 0.6 G, BID
     Route: 048
     Dates: start: 20151215, end: 20151226
  87. ALBUMIN HUMAN [Concomitant]
     Active Substance: ALBUMIN HUMAN
     Indication: FLUID REPLACEMENT
     Dosage: 10 G, BID
     Route: 042
     Dates: start: 20151203, end: 20151203
  88. AMBROXOL HYDROCHLORIDE [Concomitant]
     Active Substance: AMBROXOL HYDROCHLORIDE
     Indication: PRODUCTIVE COUGH

REACTIONS (17)
  - Pollakiuria [Recovering/Resolving]
  - Urinary tract pain [Recovering/Resolving]
  - Pyrexia [Recovered/Resolved]
  - Productive cough [Recovering/Resolving]
  - Urinary tract infection [Recovering/Resolving]
  - Cough [Recovering/Resolving]
  - Urinary tract pain [Recovered/Resolved]
  - White blood cell count increased [Unknown]
  - Nephrolithiasis [Recovered/Resolved]
  - Urinary tract infection [Recovered/Resolved]
  - Pyrexia [Unknown]
  - Alanine aminotransferase increased [Unknown]
  - Blood urea increased [Unknown]
  - Lymphocyte count decreased [Unknown]
  - Neutrophil count increased [Unknown]
  - Dyspnoea [Recovering/Resolving]
  - Pollakiuria [Recovered/Resolved]

NARRATIVE: CASE EVENT DATE: 20151205
